FAERS Safety Report 4598656-6 (Version None)
Quarter: 2005Q1

REPORT INFORMATION
  Report Type: 
  Country: None (occurrence: None)
  Receive Date: 20050304
  Receipt Date: 20050223
  Transmission Date: 20050727
  Serious: Yes (Other)
  Sender: FDA-Public Use
  Company Number: US-MERCK-0502USA03487

PATIENT
  Sex: Female

DRUGS (1)
  1. VIOXX [Suspect]
     Route: 048
     Dates: start: 20010118, end: 20030201

REACTIONS (3)
  - GASTROINTESTINAL DISORDER [None]
  - PULMONARY EMBOLISM [None]
  - ULCER HAEMORRHAGE [None]
